FAERS Safety Report 7079486-2 (Version None)
Quarter: 2010Q4

REPORT INFORMATION
  Report Type: 
  Country: None (occurrence: None)
  Receive Date: 20101102
  Receipt Date: 20101026
  Transmission Date: 20110411
  Serious: Yes (Life-Threatening)
  Sender: FDA-Public Use
  Company Number: FR-SANOFI-AVENTIS-2010SA065190

PATIENT
  Age: 79 Year
  Sex: Female

DRUGS (5)
  1. LANTUS [Suspect]
     Route: 058
     Dates: start: 20080101
  2. HUMALOG [Suspect]
     Route: 058
     Dates: start: 20080101
  3. GLICLAZIDE [Concomitant]
     Route: 048
     Dates: start: 20080101
  4. ACETYLSALICYLIC ACID [Concomitant]
     Indication: THROMBOSIS
  5. ZESTORETIC [Concomitant]
     Route: 048

REACTIONS (1)
  - SARCOMA [None]
